FAERS Safety Report 18399301 (Version 1)
Quarter: 2020Q4

REPORT INFORMATION
  Report Type: Other
  Country: US (occurrence: US)
  Receive Date: 20201019
  Receipt Date: 20201019
  Transmission Date: 20210114
  Serious: No
  Sender: FDA-Public Use
  Company Number: US-ROCHE-2691265

PATIENT
  Age: 39 Year
  Sex: Female

DRUGS (11)
  1. REMDESIVIR. [Concomitant]
     Active Substance: REMDESIVIR
     Indication: COVID-19
  2. CEFTRIAXONE. [Suspect]
     Active Substance: CEFTRIAXONE
     Indication: COVID-19
     Route: 065
  3. CEFTRIAXONE. [Suspect]
     Active Substance: CEFTRIAXONE
     Indication: ACUTE RESPIRATORY DISTRESS SYNDROME
  4. OSELTAMIVIR [Suspect]
     Active Substance: OSELTAMIVIR
     Indication: ACUTE RESPIRATORY DISTRESS SYNDROME
  5. MAGNESIUM SULFATE. [Concomitant]
     Active Substance: MAGNESIUM SULFATE
     Indication: COVID-19
     Dosage: (6-G BOLUS OVER 20 MINUTES INTRAVENOUSLY FOLLOWED BY 2 G/H INTRAVENOUSLY
     Route: 042
  6. AZITHROMYCIN ANHYDROUS. [Concomitant]
     Active Substance: AZITHROMYCIN ANHYDROUS
     Indication: COVID-19
  7. OSELTAMIVIR [Suspect]
     Active Substance: OSELTAMIVIR
     Indication: COVID-19
     Route: 065
  8. CEFTRIAXONE. [Suspect]
     Active Substance: CEFTRIAXONE
     Indication: PNEUMONIA
  9. HYDROXYCHLOROQUINE [Concomitant]
     Active Substance: HYDROXYCHLOROQUINE
     Indication: COVID-19
  10. OSELTAMIVIR [Suspect]
     Active Substance: OSELTAMIVIR
     Indication: PNEUMONIA
  11. LOW MOLECULAR WEIGHT HEPARIN [Concomitant]
     Active Substance: UNSPECIFIED INGREDIENT

REACTIONS (6)
  - Off label use [Unknown]
  - Premature delivery [Unknown]
  - Premature labour [Recovered/Resolved]
  - Intentional product use issue [Unknown]
  - Coagulopathy [Unknown]
  - Maternal exposure during pregnancy [Unknown]
